FAERS Safety Report 9641629 (Version 3)
Quarter: 2014Q1

REPORT INFORMATION
  Report Type: Report from Study
  Country: AU (occurrence: AU)
  Receive Date: 20131023
  Receipt Date: 20140207
  Transmission Date: 20141002
  Serious: Yes (Hospitalization)
  Sender: FDA-Public Use
  Company Number: AU-GLAXOSMITHKLINE-B0932874A

PATIENT
  Sex: Female
  Weight: 60 kg

DRUGS (3)
  1. DABRAFENIB [Suspect]
     Indication: METASTATIC MALIGNANT MELANOMA
     Dosage: 150MG TWICE PER DAY
     Route: 048
     Dates: start: 20130829
  2. TRAMETINIB [Suspect]
     Indication: METASTATIC MALIGNANT MELANOMA
     Dosage: 2MG PER DAY
     Route: 048
     Dates: start: 20130829
  3. ROXITHROMYCIN [Suspect]
     Indication: OROPHARYNGEAL PAIN
     Dosage: 150MG TWICE PER DAY
     Route: 048
     Dates: start: 20130921, end: 20130923

REACTIONS (6)
  - Erythema multiforme [Recovering/Resolving]
  - Rash [Recovering/Resolving]
  - Pyrexia [Recovering/Resolving]
  - Lip blister [Recovered/Resolved]
  - Oropharyngeal pain [Recovering/Resolving]
  - Mouth ulceration [Recovered/Resolved]
